FAERS Safety Report 6209224-4 (Version None)
Quarter: 2009Q2

REPORT INFORMATION
  Report Type: 
  Country: None (occurrence: None)
  Receive Date: 20090529
  Receipt Date: 20090107
  Transmission Date: 20091009
  Serious: Yes (Hospitalization)
  Sender: FDA-Public Use
  Company Number: PHEH2009US00591

PATIENT
  Age: 58 Year
  Sex: Female

DRUGS (5)
  1. TRILEPTAL [Suspect]
     Indication: ANXIETY
     Dosage: 300 MG, QD
  2. CLOZAPINE [Suspect]
     Dosage: UNK
  3. DEPAKOTE [Suspect]
     Indication: ANXIETY
     Dosage: 750 MG, QD
  4. SYNTHROID [Suspect]
     Indication: THYROIDECTOMY
     Dosage: 88 UG, QD
  5. FOLIC ACID [Suspect]
     Dosage: 1 MG, QD

REACTIONS (2)
  - FEELING ABNORMAL [None]
  - INSOMNIA [None]
